FAERS Safety Report 24391301 (Version 1)
Quarter: 2024Q4

REPORT INFORMATION
  Report Type: Spontaneous
  Country: FR (occurrence: FR)
  Receive Date: 20241003
  Receipt Date: 20241003
  Transmission Date: 20250115
  Serious: Yes (Other)
  Sender: TEVA
  Company Number: None

PATIENT
  Age: 86 Year
  Sex: Male
  Weight: 89 kg

DRUGS (5)
  1. LEVOFLOXACIN [Suspect]
     Active Substance: LEVOFLOXACIN
     Indication: Osteitis
     Route: 048
     Dates: end: 20240813
  2. AUGMENTIN [Suspect]
     Active Substance: AMOXICILLIN\CLAVULANATE POTASSIUM
     Indication: Dermo-hypodermitis
     Route: 065
     Dates: start: 202407
  3. PIPERACILLIN SODIUM\TAZOBACTAM SODIUM [Suspect]
     Active Substance: PIPERACILLIN SODIUM\TAZOBACTAM SODIUM
     Indication: Dermo-hypodermitis
     Route: 042
     Dates: start: 202407
  4. LINEZOLID [Suspect]
     Active Substance: LINEZOLID
     Indication: Osteitis
     Route: 048
     Dates: end: 20240813
  5. PIVMECILLINAM HYDROCHLORIDE [Suspect]
     Active Substance: PIVMECILLINAM HYDROCHLORIDE
     Indication: Urinary tract infection
     Dosage: PIVMECILLINAM (CHLORHYDRATE DE)
     Route: 048
     Dates: start: 20240806, end: 20240811

REACTIONS (1)
  - Clostridium difficile colitis [Recovered/Resolved]

NARRATIVE: CASE EVENT DATE: 20240817
